FAERS Safety Report 10055196 (Version 1)
Quarter: 2014Q2

REPORT INFORMATION
  Report Type: Spontaneous
  Country: US (occurrence: US)
  Receive Date: 20140403
  Receipt Date: 20140403
  Transmission Date: 20141212
  Serious: Yes (Other)
  Sender: FDA-Public Use
  Company Number: US-ROCHE-1376011

PATIENT
  Sex: Male
  Weight: 83.6 kg

DRUGS (6)
  1. ERIVEDGE [Suspect]
     Indication: BASAL CELL CARCINOMA
     Route: 048
     Dates: start: 20120702
  2. ALEVE [Concomitant]
     Indication: PAIN
     Route: 048
  3. HYDROMORPHONE [Concomitant]
     Indication: PAIN
     Dosage: 2MG EVRY 4-6 HOURS WHEN REQUIRED.
     Route: 048
  4. IBUPROFEN [Concomitant]
     Indication: PAIN
     Route: 048
  5. LEXAPRO [Concomitant]
     Indication: DEPRESSION
     Route: 048
     Dates: start: 20140214
  6. UROCIT-K [Concomitant]
     Route: 048

REACTIONS (1)
  - Duodenal ulcer [Not Recovered/Not Resolved]
